FAERS Safety Report 6154328-8 (Version None)
Quarter: 2009Q2

REPORT INFORMATION
  Report Type: 
  Country: None (occurrence: None)
  Receive Date: 20090414
  Receipt Date: 20090409
  Transmission Date: 20091009
  Serious: Yes (Hospitalization)
  Sender: FDA-Public Use
  Company Number: US-EISAI MEDIAL RESEARCH-E7272-00017-CLI-US

PATIENT
  Sex: Male

DRUGS (6)
  1. ONTAK [Suspect]
     Indication: PERIPHERAL T-CELL LYMPHOMA UNSPECIFIED
     Route: 042
     Dates: end: 20041201
  2. CYCLOPHOSPHAMIDE [Suspect]
     Route: 042
     Dates: end: 20041202
  3. VINCRISTINE [Suspect]
     Route: 042
     Dates: end: 20041202
  4. PREDNISONE TAB [Suspect]
     Route: 048
     Dates: end: 20041202
  5. DOXORUBICIN [Suspect]
     Dates: end: 20041202
  6. NEULASTA [Concomitant]
     Dates: start: 20040910, end: 20041203

REACTIONS (2)
  - ABDOMINAL PAIN [None]
  - PYREXIA [None]
